FAERS Safety Report 14912498 (Version 7)
Quarter: 2020Q4

REPORT INFORMATION
  Report Type: Report from Study
  Country: PL (occurrence: PL)
  Receive Date: 20180518
  Receipt Date: 20201021
  Transmission Date: 20210113
  Serious: Yes (Hospitalization)
  Sender: FDA-Public Use
  Company Number: PL-EISAI MEDICAL RESEARCH-EC-2018-038351

PATIENT
  Age: 64 Year
  Sex: Male
  Weight: 82 kg

DRUGS (14)
  1. LENVATINIB [Suspect]
     Active Substance: LENVATINIB
     Route: 048
     Dates: start: 20190710
  2. EVEROLIMUS. [Suspect]
     Active Substance: EVEROLIMUS
     Route: 048
     Dates: start: 20180427, end: 20180502
  3. POLOCARD [Concomitant]
     Active Substance: ASPIRIN
  4. LENVATINIB [Suspect]
     Active Substance: LENVATINIB
     Route: 048
     Dates: start: 20180718, end: 20190618
  5. LENVATINIB [Suspect]
     Active Substance: LENVATINIB
     Indication: RENAL CELL CARCINOMA
     Route: 048
     Dates: start: 20180315, end: 20180422
  6. LECALPIN [Concomitant]
  7. NEBICARD [Concomitant]
     Active Substance: NEBIVOLOL HYDROCHLORIDE
  8. EVEROLIMUS. [Suspect]
     Active Substance: EVEROLIMUS
     Route: 048
     Dates: start: 20180718, end: 20190618
  9. LENVATINIB [Suspect]
     Active Substance: LENVATINIB
     Route: 048
     Dates: start: 20180427, end: 20180502
  10. EVEROLIMUS. [Suspect]
     Active Substance: EVEROLIMUS
     Route: 048
     Dates: start: 20190710
  11. CONTROLOC [Concomitant]
     Active Substance: PANTOPRAZOLE SODIUM
  12. EVEROLIMUS. [Suspect]
     Active Substance: EVEROLIMUS
     Indication: RENAL CELL CARCINOMA
     Route: 048
     Dates: start: 20180315, end: 20180422
  13. ATORIS [Concomitant]
     Active Substance: ATORVASTATIN CALCIUM
  14. VANATEX HCT [Concomitant]

REACTIONS (2)
  - Pancreatitis acute [Recovered/Resolved]
  - Hypophosphataemia [Recovered/Resolved with Sequelae]

NARRATIVE: CASE EVENT DATE: 20180419
